FAERS Safety Report 22170925 (Version 1)
Quarter: 2023Q2

REPORT INFORMATION
  Report Type: Spontaneous
  Country: US (occurrence: None)
  Receive Date: 20230403
  Receipt Date: 20230403
  Transmission Date: 20230722
  Serious: No
  Sender: FDA-Public Use
  Company Number: None

PATIENT
  Sex: Female
  Weight: 72 kg

DRUGS (1)
  1. IBUPROFEN [Suspect]
     Active Substance: IBUPROFEN
     Indication: Sciatic nerve neuropathy
     Dosage: OTHER QUANTITY : 60 TABLET(S);?FREQUENCY : AS NEEDED;?
     Route: 048
     Dates: end: 20230314

REACTIONS (3)
  - Chest pain [None]
  - Rash pruritic [None]
  - Rash [None]

NARRATIVE: CASE EVENT DATE: 20230310
